FAERS Safety Report 18585865 (Version 1)
Quarter: 2020Q4

REPORT INFORMATION
  Report Type: Spontaneous
  Country: GR (occurrence: GR)
  Receive Date: 20201207
  Receipt Date: 20201207
  Transmission Date: 20210114
  Serious: Yes (Other)
  Sender: FDA-Public Use
  Company Number: GR-MYLANLABS-2020M1099718

PATIENT
  Age: 60 Year
  Sex: Male

DRUGS (7)
  1. DOCETAXEL. [Suspect]
     Active Substance: DOCETAXEL
     Indication: PRODUCT USED FOR UNKNOWN INDICATION
     Dosage: 06 CYCLE
  2. CABAZITAXEL [Suspect]
     Active Substance: CABAZITAXEL
     Indication: PRODUCT USED FOR UNKNOWN INDICATION
     Dosage: 10 CYCLES
  3. PACLITAXEL. [Suspect]
     Active Substance: PACLITAXEL
     Indication: PRODUCT USED FOR UNKNOWN INDICATION
     Dosage: 8 CYCLES
  4. NOVANTRONE [Suspect]
     Active Substance: MITOXANTRONE HYDROCHLORIDE
     Indication: PROSTATE CANCER METASTATIC
     Dosage: UNK
  5. BICALUTAMIDE. [Suspect]
     Active Substance: BICALUTAMIDE
     Indication: HORMONE THERAPY
     Dosage: UNK
  6. ENZALUTAMIDE [Suspect]
     Active Substance: ENZALUTAMIDE
     Indication: HORMONE THERAPY
     Dosage: UNK
  7. CARBOPLATIN. [Suspect]
     Active Substance: CARBOPLATIN
     Indication: PRODUCT USED FOR UNKNOWN INDICATION
     Dosage: 8 CYCLES

REACTIONS (1)
  - Drug ineffective [Recovering/Resolving]
